FAERS Safety Report 15159803 (Version 1)
Quarter: 2018Q3

REPORT INFORMATION
  Report Type: Spontaneous
  Country: CN (occurrence: CN)
  Receive Date: 20180718
  Receipt Date: 20180718
  Transmission Date: 20181010
  Serious: Yes (Hospitalization)
  Sender: FDA-Public Use
  Company Number: CN-GLAXOSMITHKLINE-CN2018GSK127414

PATIENT
  Age: 70 Year
  Sex: Male

DRUGS (2)
  1. SERETIDE [Suspect]
     Active Substance: FLUTICASONE PROPIONATE\SALMETEROL XINAFOATE
     Indication: ASTHMA
     Dosage: 50/250?G, 60 PUFFSUNK
     Route: 055
  2. SERETIDE [Suspect]
     Active Substance: FLUTICASONE PROPIONATE\SALMETEROL XINAFOATE
     Dosage: 50/250?G, 60 PUFFS
     Route: 055

REACTIONS (4)
  - Nasopharyngitis [Unknown]
  - Disease recurrence [Unknown]
  - Asthma [Unknown]
  - Product use issue [Unknown]
